FAERS Safety Report 15145821 (Version 1)
Quarter: 2018Q3

REPORT INFORMATION
  Report Type: Report from Study
  Country: ES (occurrence: ES)
  Receive Date: 20180714
  Receipt Date: 20180714
  Transmission Date: 20181010
  Serious: Yes (Death, Hospitalization)
  Sender: FDA-Public Use
  Company Number: ES-TEVA-2018-ES-926012

PATIENT
  Age: 68 Year
  Sex: Female

DRUGS (10)
  1. ACICLOVIR (201A) [Concomitant]
     Active Substance: ACYCLOVIR
     Dosage: 800 MG CADA 12 HORAS
     Route: 048
     Dates: start: 20170822
  2. FLUDARABINE [Suspect]
     Active Substance: FLUDARABINE PHOSPHATE
     Indication: ACUTE MYELOID LEUKAEMIA
     Dates: start: 20170921, end: 20170926
  3. ONDANSETRON (2575A) [Concomitant]
     Active Substance: ONDANSETRON
     Dosage: 8 MG/8H
     Route: 042
     Dates: start: 20170822
  4. POSACONAZOL (2996A) [Concomitant]
     Dosage: DAY
     Route: 048
     Dates: start: 20170822
  5. IDARRUBICINA (THIRD PRODUCTS) [Suspect]
     Active Substance: IDARUBICIN HYDROCHLORIDE
     Indication: ACUTE MYELOID LEUKAEMIA
     Route: 042
     Dates: start: 20170921, end: 20170925
  6. ALOPURINOL (318A) [Concomitant]
     Active Substance: ALLOPURINOL
     Route: 048
     Dates: start: 20170822
  7. RANITIDINA (2A) [Concomitant]
     Active Substance: RANITIDINE
     Dosage: 300 MG CENA
     Route: 048
     Dates: start: 20170822
  8. COLISTIMETATO DE SODIO GES [Suspect]
     Active Substance: COLISTIMETHATE SODIUM
     Indication: SEPSIS
     Dosage: 2 MLL/12H
     Route: 042
     Dates: start: 20171003, end: 20171006
  9. AMIKACINA (372A) [Suspect]
     Active Substance: AMIKACIN
     Indication: SEPSIS
     Dosage: 1 GR CADA 24 HORAS
     Route: 042
     Dates: start: 20171003, end: 20171004
  10. CITARABINA (124A) [Suspect]
     Active Substance: CYTARABINE
     Indication: ACUTE MYELOID LEUKAEMIA
     Dosage: DIA
     Route: 042
     Dates: start: 20170921, end: 20170927

REACTIONS (3)
  - Hypokalaemia [Not Recovered/Not Resolved]
  - Multiple organ dysfunction syndrome [None]
  - Sepsis [None]

NARRATIVE: CASE EVENT DATE: 20171005
